FAERS Safety Report 5758334-4 (Version None)
Quarter: 2008Q2

REPORT INFORMATION
  Report Type: 
  Country: None (occurrence: None)
  Receive Date: 20080602
  Receipt Date: 20080602
  Transmission Date: 20081010
  Serious: Yes (Hospitalization)
  Sender: FDA-Public Use
  Company Number: None

PATIENT
  Age: 54 Year
  Sex: Male
  Weight: 65.7716 kg

DRUGS (19)
  1. PANITUMUMAB [Suspect]
     Indication: SQUAMOUS CELL CARCINOMA
     Dosage: 9.0 MG/KG  I/V
     Route: 042
     Dates: start: 20080415
  2. DOCETAXEL [Suspect]
     Indication: SQUAMOUS CELL CARCINOMA
     Dosage: 75 MG/M2  I/V
     Route: 042
     Dates: start: 20080415
  3. CISPLATIN [Suspect]
     Dosage: 100 MG/M2  I/V
     Route: 042
     Dates: start: 20080415
  4. FLUOROURACIL [Suspect]
     Dosage: 800 MG/M2  I/V
     Route: 042
     Dates: start: 20080415
  5. ACYCLOVIR SODIUM [Concomitant]
  6. ATIVAN [Concomitant]
  7. COLACE [Concomitant]
  8. COMPAZINE [Concomitant]
  9. DECADRON [Concomitant]
  10. KEOPECTATE [Concomitant]
  11. LEVAQUIN [Concomitant]
  12. OMPRAZOLE [Concomitant]
  13. OXYCODINE [Concomitant]
  14. REGLAN [Concomitant]
  15. SENNA TABLETS [Concomitant]
  16. SIMETHCONE [Concomitant]
  17. TYLENOL [Concomitant]
  18. ZANTAC [Concomitant]
  19. ZOFRAN [Concomitant]

REACTIONS (5)
  - ABSCESS [None]
  - ERYTHEMA [None]
  - FEBRILE NEUTROPENIA [None]
  - NECK PAIN [None]
  - SWELLING [None]
